FAERS Safety Report 23144183 (Version 2)
Quarter: 2023Q4

REPORT INFORMATION
  Report Type: Spontaneous
  Country: US (occurrence: US)
  Receive Date: 20231103
  Receipt Date: 20231213
  Transmission Date: 20240110
  Serious: Yes (Other)
  Sender: FDA-Public Use
  Company Number: US-BAXTER-2023BAX034544

PATIENT
  Age: 65 Year
  Sex: Female

DRUGS (3)
  1. REGADENOSON [Suspect]
     Active Substance: REGADENOSON
     Indication: Cardiac stress test
     Dosage: 0.4 MG
     Route: 065
  2. RUBIDIUM RB-82 [Concomitant]
     Active Substance: RUBIDIUM RB-82
     Indication: Cardiac stress test
     Dosage: 19 MCL
     Route: 065
  3. RUBIDIUM RB-82 [Concomitant]
     Active Substance: RUBIDIUM RB-82
     Dosage: ANOTHER 19 MCL FOR STRESS IMAGE ACQUISITION
     Route: 065

REACTIONS (6)
  - Left ventricle outflow tract obstruction [Unknown]
  - Ischaemia [Unknown]
  - Cardiac perfusion defect [Unknown]
  - Dilatation ventricular [Unknown]
  - Ejection fraction decreased [Unknown]
  - Radioisotope uptake increased [Unknown]
